FAERS Safety Report 11543407 (Version 2)
Quarter: 2016Q2

REPORT INFORMATION
  Report Type: Report from Study
  Country: US (occurrence: US)
  Receive Date: 20150923
  Receipt Date: 20160520
  Transmission Date: 20160815
  Serious: No
  Sender: FDA-Public Use
  Company Number: US-MDT-ADR-2015-01836

PATIENT
  Age: 53 Year
  Sex: Female

DRUGS (12)
  1. NORCO [Suspect]
     Active Substance: ACETAMINOPHEN\HYDROCODONE BITARTRATE
  2. LASIX [Suspect]
     Active Substance: FUROSEMIDE
  3. VOLTAREN [Suspect]
     Active Substance: DICLOFENAC SODIUM
  4. TRIAMTERENE-HCTZ [Suspect]
     Active Substance: HYDROCHLOROTHIAZIDE\TRIAMTERENE
  5. MARCAINE [Suspect]
     Active Substance: BUPIVACAINE HYDROCHLORIDE
     Dosage: 8.1580 MG/DAY
     Route: 037
  6. AMITRIPTYLINE [Suspect]
     Active Substance: AMITRIPTYLINE
  7. BACLOFEN. [Suspect]
     Active Substance: BACLOFEN
  8. XANAX [Suspect]
     Active Substance: ALPRAZOLAM
  9. LEVOTHYROXINE SODIUM. [Suspect]
     Active Substance: LEVOTHYROXINE SODIUM
  10. COMPOUNDED BACLOFEN [Suspect]
     Active Substance: BACLOFEN
     Dosage: 117.21 MCG/DAY
     Route: 037
  11. DILAUDID [Suspect]
     Active Substance: HYDROMORPHONE HYDROCHLORIDE
     Dosage: 23.442 MG/DAY
     Route: 037
  12. LIDODERM [Suspect]
     Active Substance: LIDOCAINE
     Route: 061

REACTIONS (1)
  - Hypoaesthesia [Recovered/Resolved]

NARRATIVE: CASE EVENT DATE: 20110222
